FAERS Safety Report 17504845 (Version 1)
Quarter: 2020Q1

REPORT INFORMATION
  Report Type: Spontaneous
  Country: US (occurrence: US)
  Receive Date: 20200305
  Receipt Date: 20200305
  Transmission Date: 20200409
  Serious: Yes (Other)
  Sender: FDA-Public Use
  Company Number: US-HIKMA PHARMACEUTICALS USA INC.-US-H14001-20-01022

PATIENT
  Age: 37 Year
  Sex: Male

DRUGS (1)
  1. KETAMIN [Suspect]
     Active Substance: KETAMINE
     Indication: PRODUCT USED FOR UNKNOWN INDICATION

REACTIONS (3)
  - Biliary dilatation [Unknown]
  - Cystitis ulcerative [Unknown]
  - Drug abuse [Unknown]
